FAERS Safety Report 5797826-9 (Version None)
Quarter: 2008Q3

REPORT INFORMATION
  Report Type: 
  Country: None (occurrence: None)
  Receive Date: 20080702
  Receipt Date: 20080624
  Transmission Date: 20090109
  Serious: Yes (Hospitalization, Other)
  Sender: FDA-Public Use
  Company Number: TR-WYE-H04405108

PATIENT
  Age: 58 Year
  Sex: Male

DRUGS (4)
  1. PIPERACILLIN AND TAZOBACTAM [Suspect]
     Indication: EMPYEMA
     Dosage: 3X1GR
     Route: 042
  2. PIPERACILLIN AND TAZOBACTAM [Suspect]
     Indication: PSEUDOMONAS INFECTION
  3. AMIKACIN [Concomitant]
     Indication: EMPYEMA
     Dosage: 1 X 1 GR
     Route: 042
  4. AMIKACIN [Concomitant]
     Indication: PSEUDOMONAS INFECTION

REACTIONS (1)
  - BONE MARROW FAILURE [None]
